FAERS Safety Report 6045452-9 (Version None)
Quarter: 2009Q1

REPORT INFORMATION
  Report Type: 
  Country: None (occurrence: None)
  Receive Date: 20090121
  Receipt Date: 20090114
  Transmission Date: 20090719
  Serious: Yes (Hospitalization)
  Sender: FDA-Public Use
  Company Number: PHHO2008US15376

PATIENT
  Sex: Male
  Weight: 133.33 kg

DRUGS (7)
  1. ALDESLEUKIN C-ALDE+INJ [Suspect]
     Indication: METASTATIC RENAL CELL CARCINOMA
     Dosage: 56.7MMU
     Dates: start: 20081203
  2. PROCRIT                            /00909301/ [Concomitant]
  3. ALPRAZOLAM [Concomitant]
  4. NYQUIL [Concomitant]
  5. AMBIEN [Concomitant]
  6. FERROUS GLUCONATE [Concomitant]
  7. FLOMAX [Concomitant]

REACTIONS (9)
  - CATHETER PLACEMENT [None]
  - CATHETER SITE INFECTION [None]
  - CHEST PAIN [None]
  - DEEP VEIN THROMBOSIS [None]
  - HYPOAESTHESIA [None]
  - LOCALISED OEDEMA [None]
  - NECK PAIN [None]
  - PAIN IN EXTREMITY [None]
  - PNEUMONIA [None]
